FAERS Safety Report 9530107 (Version 1)
Quarter: 2013Q3

REPORT INFORMATION
  Report Type: Spontaneous
  Country: DE (occurrence: DE)
  Receive Date: 20130917
  Receipt Date: 20130917
  Transmission Date: 20140515
  Serious: Yes (Hospitalization, Other)
  Sender: FDA-Public Use
  Company Number: DE-PFIZER INC-2013260928

PATIENT
  Age: 80 Year
  Sex: Female

DRUGS (6)
  1. ZELDOX [Suspect]
     Dosage: UNK
     Dates: start: 200907, end: 201206
  2. LEPONEX [Concomitant]
     Dosage: UNK
  3. TRIMIPRAMINE [Concomitant]
  4. MELPERONE [Concomitant]
  5. RISPERDAL [Concomitant]
  6. SEROQUEL [Concomitant]

REACTIONS (12)
  - Blood pressure increased [Unknown]
  - Visual impairment [Recovering/Resolving]
  - Hepatic function abnormal [Unknown]
  - Pain [Unknown]
  - Gait disturbance [Recovering/Resolving]
  - Mucosal discolouration [Recovering/Resolving]
  - Tongue discolouration [Recovering/Resolving]
  - Eye pain [Recovering/Resolving]
  - Abnormal dreams [Recovering/Resolving]
  - Chest pain [Not Recovered/Not Resolved]
  - Dyspnoea [Not Recovered/Not Resolved]
  - Cardiac disorder [Unknown]
